FAERS Safety Report 13656248 (Version 1)
Quarter: 2017Q2

REPORT INFORMATION
  Report Type: Spontaneous
  Country: US (occurrence: US)
  Receive Date: 20170615
  Receipt Date: 20170615
  Transmission Date: 20170830
  Serious: No
  Sender: FDA-Public Use
  Company Number: US-MYLANLABS-2017M1027790

PATIENT
  Sex: Female
  Weight: 54 kg

DRUGS (2)
  1. CLINDAMYCIN PALMITATE HYDROCHLORIDE FOR ORAL SOLUTION USP [Suspect]
     Active Substance: CLINDAMYCIN PALMITATE HYDROCHLORIDE
     Indication: SKIN BACTERIAL INFECTION
     Dosage: 20 ML, Q6H FOR 7 DAYS
     Route: 048
     Dates: start: 20170415
  2. MUPIROCIN. [Suspect]
     Active Substance: MUPIROCIN
     Indication: SKIN BACTERIAL INFECTION
     Dosage: UNK
     Route: 061
     Dates: start: 20170415

REACTIONS (1)
  - Rash [Recovered/Resolved]
